FAERS Safety Report 8424833 (Version 5)
Quarter: 2013Q1

REPORT INFORMATION
  Report Type: Report from Study
  Country: JP (occurrence: JP)
  Receive Date: 20120224
  Receipt Date: 20130128
  Transmission Date: 20140127
  Serious: Yes (Hospitalization)
  Sender: FDA-Public Use
  Company Number: JP-JNJFOC-20120209970

PATIENT
  Age: 39 Year
  Sex: Female
  Weight: 41 kg

DRUGS (26)
  1. STELARA [Suspect]
     Indication: PSORIATIC ARTHROPATHY
     Route: 058
     Dates: start: 20120110
  2. STELARA [Suspect]
     Indication: PSORIATIC ARTHROPATHY
     Route: 058
     Dates: start: 20111011
  3. STELARA [Suspect]
     Indication: PSORIATIC ARTHROPATHY
     Route: 058
     Dates: start: 20110727
  4. STELARA [Suspect]
     Indication: PSORIATIC ARTHROPATHY
     Route: 058
     Dates: start: 20110629
  5. INFLIXIMAB [Suspect]
     Indication: PSORIATIC ARTHROPATHY
     Dosage: 10MG/KG PER MONTH
     Dates: end: 20110525
  6. PREDNISOLONE [Suspect]
     Indication: PSORIATIC ARTHROPATHY
     Route: 048
  7. PROGRAF [Suspect]
     Indication: PSORIATIC ARTHROPATHY
     Dates: start: 20111221, end: 20120521
  8. PROGRAF [Suspect]
     Indication: PSORIATIC ARTHROPATHY
     Dates: start: 20110927, end: 20111220
  9. PROGRAF [Suspect]
     Indication: PSORIATIC ARTHROPATHY
     Dates: start: 20070117, end: 20110926
  10. PROGRAF [Suspect]
     Indication: PSORIATIC ARTHROPATHY
     Dates: start: 20060314, end: 20060419
  11. PROGRAF [Suspect]
     Indication: PSORIATIC ARTHROPATHY
     Dates: start: 20060420, end: 20060423
  12. PROGRAF [Suspect]
     Indication: PSORIATIC ARTHROPATHY
     Dates: start: 20060824, end: 20070116
  13. METHOTREXATE [Concomitant]
     Indication: PSORIATIC ARTHROPATHY
     Route: 048
  14. FERROMIA [Concomitant]
     Route: 048
  15. ROHYPNOL [Concomitant]
     Indication: INSOMNIA
     Route: 048
  16. ATARAX-P [Concomitant]
     Route: 048
  17. CALONAL [Concomitant]
     Indication: PSORIATIC ARTHROPATHY
     Route: 048
     Dates: end: 20110807
  18. CALONAL [Concomitant]
     Indication: PSORIATIC ARTHROPATHY
     Route: 048
     Dates: start: 20110830, end: 20110926
  19. CALONAL [Concomitant]
     Indication: PSORIATIC ARTHROPATHY
     Route: 048
     Dates: start: 20110927, end: 20111010
  20. CALONAL [Concomitant]
     Indication: PSORIATIC ARTHROPATHY
     Route: 048
     Dates: start: 20111011
  21. CALONAL [Concomitant]
     Indication: PSORIATIC ARTHROPATHY
     Route: 048
     Dates: start: 20110808, end: 20110829
  22. CODEINE PHOSPHATE [Concomitant]
     Indication: PSORIATIC ARTHROPATHY
     Route: 048
     Dates: end: 20110711
  23. NAUZELIN [Concomitant]
     Route: 048
  24. AZEPTIN [Concomitant]
     Indication: PSORIATIC ARTHROPATHY
     Route: 048
     Dates: end: 20120521
  25. UFENAMATE [Concomitant]
     Indication: PSORIATIC ARTHROPATHY
     Route: 061
  26. BONOTEO [Concomitant]
     Indication: OSTEOPOROSIS
     Route: 048

REACTIONS (3)
  - Erythema infectiosum [Recovered/Resolved]
  - Blood alkaline phosphatase increased [Recovered/Resolved]
  - Gamma-glutamyltransferase increased [Recovered/Resolved]
